FAERS Safety Report 18060959 (Version 1)
Quarter: 2020Q3

REPORT INFORMATION
  Report Type: Spontaneous
  Country: GB (occurrence: GB)
  Receive Date: 20200723
  Receipt Date: 20200723
  Transmission Date: 20201103
  Serious: Yes (Other)
  Sender: FDA-Public Use
  Company Number: GB-SA-2020SA185615

PATIENT

DRUGS (18)
  1. MEBEVERINE HYDROCHLORIDE [Concomitant]
     Active Substance: MEBEVERINE HYDROCHLORIDE
     Dosage: 1 DF AT MEAL TIMES, 20 MINS PRE FOOD
     Dates: start: 20200526, end: 20200602
  2. CLOTRIMAZOLE. [Concomitant]
     Active Substance: CLOTRIMAZOLE
     Dosage: 2 DF, QD
     Route: 061
     Dates: start: 20200506, end: 20200513
  3. HYDROCORTISONE. [Concomitant]
     Active Substance: HYDROCORTISONE
     Indication: RASH
     Dosage: APPLY THINLY
     Dates: start: 20200616
  4. BECLOMETASONE [Concomitant]
     Active Substance: BECLOMETHASONE DIPROPIONATE
     Dosage: 8 DF, QD (PUFFS, 2 UP EACH NOSTRIL)
     Dates: start: 20200618
  5. ZOPICLONE [Concomitant]
     Active Substance: ZOPICLONE
     Dosage: 1 DF
     Dates: start: 20200521, end: 20200522
  6. LOPERAMIDE [Concomitant]
     Active Substance: LOPERAMIDE
     Indication: DIARRHOEA
     Dosage: 2 CAPSULES INITIALLY, 1 AFTER EVERY LOOSE STOOL
     Dates: start: 20200522, end: 20200619
  7. IBUPROFEN. [Concomitant]
     Active Substance: IBUPROFEN
     Dosage: 2 DF, TID
     Dates: start: 20200622, end: 20200624
  8. DOUBLEBASE [Concomitant]
     Active Substance: ISOPROPYL MYRISTATE\PARAFFIN
     Dosage: 1 DF, PRN
     Dates: start: 20200421, end: 20200505
  9. CLOPIDOGREL [Concomitant]
     Active Substance: CLOPIDOGREL BISULFATE
     Dosage: 1 DF, QD
     Dates: start: 20200527
  10. LANSOPRAZOLE. [Concomitant]
     Active Substance: LANSOPRAZOLE
     Dosage: 1 DF
     Dates: start: 20200218
  11. METOCLOPRAMIDE. [Concomitant]
     Active Substance: METOCLOPRAMIDE
     Dosage: 1 DF, PRN (AT MEALTIMES)
     Dates: start: 20200526, end: 20200602
  12. MIRTAZAPINE. [Concomitant]
     Active Substance: MIRTAZAPINE
     Dosage: 1 DF
     Dates: start: 20191202
  13. CETIRIZINE [Concomitant]
     Active Substance: CETIRIZINE HYDROCHLORIDE
     Dosage: 1 DF, PRN (UP TO 1 A DAY)
     Dates: start: 20200602, end: 20200618
  14. AMOROLFINE [Concomitant]
     Active Substance: AMOROLFINE
     Indication: NAIL DISORDER
     Dosage: APPLY AS DIRECTED
     Dates: start: 20200615
  15. FEXOFENADINE HYDROCHLORIDE. [Suspect]
     Active Substance: FEXOFENADINE HYDROCHLORIDE
     Dosage: 120 MG, QD
     Dates: start: 20200618
  16. PARACETAMOL [Concomitant]
     Active Substance: ACETAMINOPHEN
     Dosage: 1 TO 2, UP TO 4 TIMES PER DAY
     Dates: start: 20200615, end: 20200617
  17. METHADONE [Concomitant]
     Active Substance: METHADONE HYDROCHLORIDE
     Dosage: 6 ML
     Dates: start: 20200516, end: 20200520
  18. PROMETHAZINE HYDROCHLORIDE. [Concomitant]
     Active Substance: PROMETHAZINE HYDROCHLORIDE
     Dosage: 1 DF, QD (AT NIGHT)
     Dates: start: 20200526, end: 20200530

REACTIONS (1)
  - Vitiligo [Unknown]
